FAERS Safety Report 23976544 (Version 3)
Quarter: 2025Q1

REPORT INFORMATION
  Report Type: Report from Study
  Country: DE (occurrence: DE)
  Receive Date: 20240614
  Receipt Date: 20250328
  Transmission Date: 20250409
  Serious: Yes (Hospitalization, Other)
  Sender: RANBAXY
  Company Number: DE-SUN PHARMACEUTICAL INDUSTRIES LTD-2024R1-451006

PATIENT
  Age: 10 Month
  Sex: Male

DRUGS (6)
  1. EMPAGLIFLOZIN [Suspect]
     Active Substance: EMPAGLIFLOZIN
     Indication: Neutropenia
     Dosage: 0.11 MILLIGRAM/KILOGRAM, QD
     Route: 065
  2. EMPAGLIFLOZIN [Suspect]
     Active Substance: EMPAGLIFLOZIN
     Indication: Neutrophil count abnormal
     Dosage: 0.23 MILLIGRAM/KILOGRAM, QD
     Route: 065
  3. EMPAGLIFLOZIN [Suspect]
     Active Substance: EMPAGLIFLOZIN
     Indication: Glycogen storage disease type I
  4. granulocyte stimulation factor [Concomitant]
     Indication: Neutropenia
     Route: 065
  5. granulocyte stimulation factor [Concomitant]
     Indication: Neutrophil count abnormal
  6. granulocyte stimulation factor [Concomitant]
     Indication: Glycogen storage disease type I

REACTIONS (5)
  - Disease recurrence [Unknown]
  - Bronchitis chronic [Unknown]
  - Pseudomonas infection [Unknown]
  - Klebsiella infection [Unknown]
  - Off label use [Unknown]
